FAERS Safety Report 5136081-X (Version None)
Quarter: 2006Q4

REPORT INFORMATION
  Report Type: 
  Country: None (occurrence: None)
  Receive Date: 20061027
  Receipt Date: 20061024
  Transmission Date: 20070319
  Serious: Yes (Death)
  Sender: FDA-Public Use
  Company Number: 2006UW20520

PATIENT
  Age: 68 Year
  Sex: Male
  Weight: 79.4 kg

DRUGS (3)
  1. SEROQUEL [Suspect]
     Route: 048
     Dates: start: 20060914
  2. DEPAKOTE [Concomitant]
  3. UNSPECIFIED [Concomitant]

REACTIONS (1)
  - COMPLETED SUICIDE [None]
